FAERS Safety Report 5267981-8 (Version None)
Quarter: 2007Q1

REPORT INFORMATION
  Report Type: 
  Country: None (occurrence: None)
  Receive Date: 20061214
  Receipt Date: 20051018
  Transmission Date: 20070707
  Serious: Yes (Other)
  Sender: FDA-Public Use
  Company Number: 2005145623

PATIENT
  Age: 57 Year
  Sex: Female
  Weight: 72.5755 kg

DRUGS (3)
  1. XANAX [Suspect]
     Indication: ANXIETY
     Dates: start: 19860101
  2. XANAX [Suspect]
     Indication: PANIC ATTACK
     Dates: start: 19860101
  3. TOFRANIL [Suspect]
     Indication: ILL-DEFINED DISORDER

REACTIONS (4)
  - CORRECTIVE LENS USER [None]
  - DRUG DEPENDENCE [None]
  - DRUG WITHDRAWAL SYNDROME [None]
  - WEIGHT INCREASED [None]
